FAERS Safety Report 8093096-X (Version None)
Quarter: 2012Q1

REPORT INFORMATION
  Report Type: 
  Country: None (occurrence: None)
  Receive Date: 20120128
  Receipt Date: 20110907
  Transmission Date: 20120608
  Serious: No
  Sender: FDA-Public Use
  Company Number: US-ABBOTT-11P-163-0838257-00

PATIENT
  Sex: Female

DRUGS (1)
  1. HUMIRA [Suspect]
     Indication: CROHN'S DISEASE
     Dates: start: 20110301

REACTIONS (4)
  - PAIN OF SKIN [None]
  - PARAESTHESIA [None]
  - BURNING SENSATION [None]
  - JOINT SWELLING [None]
